FAERS Safety Report 4591082-5 (Version None)
Quarter: 2005Q1

REPORT INFORMATION
  Report Type: 
  Country: None (occurrence: None)
  Receive Date: 20050225
  Receipt Date: 20050218
  Transmission Date: 20050727
  Serious: Yes (Hospitalization)
  Sender: FDA-Public Use
  Company Number: 200511567GDDC

PATIENT
  Age: 44 Year
  Sex: Female

DRUGS (3)
  1. LANTUS [Suspect]
     Indication: DIABETES MELLITUS
  2. NOVORAPID [Concomitant]
     Indication: DIABETES MELLITUS
  3. VARIOUS UNSPECIFIED DRUGS [Concomitant]
     Indication: HYPERTENSION

REACTIONS (6)
  - BLOOD GLUCOSE FLUCTUATION [None]
  - DEVICE FAILURE [None]
  - DYSPNOEA [None]
  - FEELING ABNORMAL [None]
  - MYOCARDIAL INFARCTION [None]
  - PHARMACEUTICAL PRODUCT COMPLAINT [None]
